FAERS Safety Report 8538342-0 (Version None)
Quarter: 2012Q3

REPORT INFORMATION
  Report Type: 
  Country: None (occurrence: None)
  Receive Date: 20120726
  Receipt Date: 20120714
  Transmission Date: 20120928
  Serious: Yes (Hospitalization)
  Sender: FDA-Public Use
  Company Number: CN-BRISTOL-MYERS SQUIBB COMPANY-16792681

PATIENT
  Age: 58 Year
  Sex: Male

DRUGS (4)
  1. CETUXIMAB [Suspect]
     Indication: COLON CANCER METASTATIC
     Dosage: RECENT DOSE:25MAY2012
     Route: 041
     Dates: start: 20120223, end: 20120525
  2. OXALIPLATIN [Suspect]
     Indication: COLON CANCER METASTATIC
     Dosage: RECENT DOSE:25MAY2012
     Route: 041
     Dates: start: 20120223, end: 20120525
  3. FLUOROURACIL [Suspect]
     Indication: COLON CANCER METASTATIC
     Dosage: RECENT DOSE:25MAY2012
     Route: 041
     Dates: start: 20120223, end: 20120525
  4. LEUCOVORIN CALCIUM [Suspect]
     Indication: COLON CANCER METASTATIC
     Dosage: RECENT DOSE:25MAY2012
     Route: 041
     Dates: start: 20120223, end: 20120525

REACTIONS (1)
  - VENTRICULAR EXTRASYSTOLES [None]
